FAERS Safety Report 7291501-X (Version None)
Quarter: 2011Q1

REPORT INFORMATION
  Report Type: 
  Country: None (occurrence: None)
  Receive Date: 20110201
  Receipt Date: 20110117
  Transmission Date: 20110831
  Serious: Yes (Hospitalization)
  Sender: FDA-Public Use
  Company Number: AUR-APL-2011-00248

PATIENT
  Age: 62 Year
  Sex: Female

DRUGS (2)
  1. CIPROFLOXACIN [Suspect]
     Indication: INFECTION
     Dosage: ^1DF^ - 2 DAILY - ORAL
     Route: 048
     Dates: start: 20101223, end: 20101223
  2. ATENOLOL [Concomitant]

REACTIONS (11)
  - EAR DISCOMFORT [None]
  - INFLAMMATION [None]
  - ANAPHYLACTIC SHOCK [None]
  - URTICARIA [None]
  - UPPER AIRWAY OBSTRUCTION [None]
  - SWELLING FACE [None]
  - PHARYNGEAL OEDEMA [None]
  - PRURITUS [None]
  - ORAL PAIN [None]
  - GINGIVAL PAIN [None]
  - PHARYNGITIS [None]
